FAERS Safety Report 8923471 (Version 1)
Quarter: 2012Q4

REPORT INFORMATION
  Report Type: 
  Country: US (occurrence: US)
  Receive Date: 20121124
  Receipt Date: 20121124
  Transmission Date: 20130627
  Serious: Yes (Other)
  Sender: FDA-Public Use
  Company Number: US-BAYER-2012-121490

PATIENT

DRUGS (10)
  1. BAYER ASPIRIN REGIMEN ADULT LOW STRENGTH [Suspect]
  2. ZOLOFT [Concomitant]
     Dosage: 1.5 DF, QD
     Route: 048
  3. LISINOPRIL [Concomitant]
     Dosage: 20 mg, BID
     Route: 048
  4. IBUPROFEN [Concomitant]
     Dosage: 800 mg, TID prn
     Route: 048
  5. METFORMIN [Concomitant]
     Dosage: 1000 mg, BID
     Route: 048
  6. SYMBICORT [Concomitant]
     Dosage: 1 inhalation twice daily
     Route: 055
  7. ATENOLOL [Concomitant]
     Dosage: 25 mg, QD
     Route: 048
  8. LORAZEPAM [Concomitant]
     Dosage: 0.5 DF, HS prn sleep
     Route: 048
  9. VENTOLIN [SALBUTAMOL] [Concomitant]
     Dosage: 2 puff(s), QID, 90 mcg/inh
     Route: 055
  10. LIPITOR [Concomitant]
     Dosage: 40 mg, QD
     Route: 048

REACTIONS (2)
  - Catheterisation cardiac [None]
  - Coronary artery bypass [None]
